FAERS Safety Report 13858093 (Version 1)
Quarter: 2017Q3

REPORT INFORMATION
  Report Type: Spontaneous
  Country: IT (occurrence: IT)
  Receive Date: 20170811
  Receipt Date: 20170811
  Transmission Date: 20171127
  Serious: Yes (Hospitalization)
  Sender: FDA-Public Use
  Company Number: IT-TEVA-792237ACC

PATIENT
  Age: 38 Year
  Sex: Female

DRUGS (2)
  1. FUROSEMIDE. [Suspect]
     Active Substance: FUROSEMIDE
     Indication: DRUG USE DISORDER
     Route: 065
  2. SENNA DRY EXTRACT [Suspect]
     Active Substance: SENNA LEAF
     Indication: DRUG USE DISORDER
     Route: 065

REACTIONS (7)
  - Hypokalaemia [Unknown]
  - Rhabdomyolysis [Recovered/Resolved]
  - Drug abuse [Recovered/Resolved]
  - Paralysis [Recovered/Resolved]
  - Drug interaction [None]
  - Conduction disorder [Recovered/Resolved]
  - Toxicity to various agents [None]
